FAERS Safety Report 7027167-3 (Version None)
Quarter: 2010Q4

REPORT INFORMATION
  Report Type: 
  Country: None (occurrence: None)
  Receive Date: 20101004
  Receipt Date: 20100823
  Transmission Date: 20110411
  Serious: No
  Sender: FDA-Public Use
  Company Number: US-PFIZER INC-2010105939

PATIENT
  Sex: Female

DRUGS (11)
  1. CHANTIX [Suspect]
     Dosage: UNK
  2. VICODIN [Concomitant]
     Dosage: UNK
  3. BENADRYL [Concomitant]
     Dosage: UNK
  4. ROBAXIN [Concomitant]
     Dosage: UNK
  5. LYRICA [Concomitant]
     Dosage: UNK
  6. LEVOTHYROXINE [Concomitant]
     Dosage: UNK
  7. ANTADINE [Concomitant]
     Dosage: UNK
  8. XANAX [Concomitant]
     Dosage: UNK
  9. PRILOSEC [Concomitant]
     Dosage: UNK
  10. PROMETHAZINE [Concomitant]
     Dosage: UNK
  11. ACIDOPHILUS [Concomitant]
     Dosage: UNK

REACTIONS (1)
  - PAIN IN EXTREMITY [None]
